FAERS Safety Report 8845092 (Version 1)
Quarter: 2012Q4

REPORT INFORMATION
  Report Type: 
  Country: US (occurrence: US)
  Receive Date: 20121017
  Receipt Date: 20121017
  Transmission Date: 20130627
  Serious: Yes (Death, Other)
  Sender: FDA-Public Use
  Company Number: US-ASTELLAS-2012US009998

PATIENT
  Age: 42 None
  Sex: Male

DRUGS (2)
  1. PROGRAF [Suspect]
     Indication: RENAL TRANSPLANT
     Dosage: 3 mg, bid
     Route: 048
     Dates: start: 19970927, end: 201205
  2. PROGRAF [Suspect]
     Indication: PANCREAS TRANSPLANT

REACTIONS (5)
  - Off label use [Unknown]
  - Death [Fatal]
  - Pancreas transplant [Unknown]
  - Transplant failure [Unknown]
  - Leg amputation [Unknown]
